FAERS Safety Report 21906880 (Version 2)
Quarter: 2023Q2

REPORT INFORMATION
  Report Type: Other
  Country: PK (occurrence: None)
  Receive Date: 20230125
  Receipt Date: 20230525
  Transmission Date: 20230722
  Serious: Yes (Death, Other)
  Sender: FDA-Public Use
  Company Number: PK-ROCHE-3269416

PATIENT
  Age: 70 Year
  Sex: Male

DRUGS (1)
  1. RITUXIMAB [Suspect]
     Active Substance: RITUXIMAB
     Indication: Diffuse large B-cell lymphoma
     Dosage: RISTOVA 600MG , 8 CYCLES 3 WEEKLY
     Route: 042
     Dates: start: 20221010, end: 20221213

REACTIONS (2)
  - Neoplasm malignant [Fatal]
  - Gastric infection [Unknown]

NARRATIVE: CASE EVENT DATE: 20230329
